FAERS Safety Report 15137862 (Version 1)
Quarter: 2018Q3

REPORT INFORMATION
  Report Type: Spontaneous
  Country: IL (occurrence: IL)
  Receive Date: 20180712
  Receipt Date: 20180712
  Transmission Date: 20181010
  Serious: Yes (Hospitalization)
  Sender: FDA-Public Use
  Company Number: IL-ALLERGAN-1834976US

PATIENT
  Age: 78 Year
  Sex: Female

DRUGS (5)
  1. ESCITALOPRAM OXALATE ? BP [Suspect]
     Active Substance: ESCITALOPRAM OXALATE
     Indication: PRODUCT USED FOR UNKNOWN INDICATION
     Dosage: 0.5 DF, UNK
     Route: 065
  2. STATOR [Concomitant]
     Route: 065
  3. INSULIN DEGLUDEC [Concomitant]
     Active Substance: INSULIN DEGLUDEC
     Route: 065
  4. NORMITEN [Concomitant]
     Active Substance: ATENOLOL
     Route: 065
  5. STEROCORT [Concomitant]
     Route: 065

REACTIONS (1)
  - Seizure [Recovered/Resolved]

NARRATIVE: CASE EVENT DATE: 20161220
